FAERS Safety Report 8762848 (Version 1)
Quarter: 2012Q4

REPORT INFORMATION
  Report Type: 
  Country: US (occurrence: US)
  Receive Date: 20120830
  Receipt Date: 20120830
  Transmission Date: 20130627
  Serious: No
  Sender: FDA-Public Use
  Company Number: US-PFIZER INC-2012207723

PATIENT
  Age: 43 Year
  Sex: Female

DRUGS (2)
  1. VIAGRA [Suspect]
     Indication: ANALGESIC THERAPY
     Dosage: 50 mg, daily
  2. VIAGRA [Suspect]
     Indication: POOR PERIPHERAL CIRCULATION

REACTIONS (4)
  - Off label use [Unknown]
  - Analgesic therapy [Unknown]
  - Promotion of wound healing [Unknown]
  - Therapeutic response unexpected [Unknown]
